FAERS Safety Report 19473341 (Version 2)
Quarter: 2021Q3

REPORT INFORMATION
  Report Type: Report from Study
  Country: US (occurrence: US)
  Receive Date: 20210629
  Receipt Date: 20210702
  Transmission Date: 20211014
  Serious: Yes (Hospitalization, Other)
  Sender: FDA-Public Use
  Company Number: US-BIOVITRUM-DOV-000944

PATIENT
  Age: 64 Year
  Sex: Female
  Weight: 82 kg

DRUGS (17)
  1. DOPTELET [Suspect]
     Active Substance: AVATROMBOPAG MALEATE
     Indication: IMMUNE THROMBOCYTOPENIA
     Dosage: 20 MILLIGRAM 4 DAYS A WEEK (SUN, TUES, THUR, SAT)
     Route: 048
     Dates: start: 20191023
  2. VITAMIN C [Concomitant]
     Active Substance: ASCORBIC ACID
     Route: 048
  3. RITUXIMAB. [Suspect]
     Active Substance: RITUXIMAB
     Indication: ANTIBODY TEST ABNORMAL
     Dosage: AS DIRECTED
     Route: 042
  4. PFIZER?BIONTECH COVID?19 VACCINE [Suspect]
     Active Substance: TOZINAMERAN
     Indication: COVID-19
     Route: 030
     Dates: start: 20210322
  5. METOPROLOL TARTATE [Concomitant]
     Active Substance: METOPROLOL TARTRATE
     Route: 048
  6. HCTZ [Concomitant]
     Active Substance: HYDROCHLOROTHIAZIDE
     Route: 048
  7. TENOFOVIR [Concomitant]
     Active Substance: TENOFOVIR
     Dosage: AS DIRECTED
     Route: 048
  8. DOPTELET [Suspect]
     Active Substance: AVATROMBOPAG MALEATE
     Indication: THROMBOCYTOPENIA
     Route: 048
     Dates: start: 20210405
  9. AMLODIPINE [Concomitant]
     Active Substance: AMLODIPINE BESYLATE
     Route: 048
  10. FLUOXETINE [Concomitant]
     Active Substance: FLUOXETINE HYDROCHLORIDE
     Route: 048
  11. MIRTAZEPINE [Concomitant]
     Active Substance: MIRTAZAPINE
     Route: 048
  12. CALCIUM [Concomitant]
     Active Substance: CALCIUM
     Route: 048
  13. CETIRAZINE [Concomitant]
     Route: 048
  14. IRON [Concomitant]
     Active Substance: IRON
     Route: 048
  15. DOPTELET [Suspect]
     Active Substance: AVATROMBOPAG MALEATE
     Route: 048
     Dates: start: 20210118
  16. PLAVIX [Concomitant]
     Active Substance: CLOPIDOGREL BISULFATE
     Route: 048
  17. OMEPRAZOLE. [Concomitant]
     Active Substance: OMEPRAZOLE
     Route: 048

REACTIONS (10)
  - Heart rate increased [Unknown]
  - Hepatitis B virus test positive [Unknown]
  - Potentiating drug interaction [Unknown]
  - Atrial fibrillation [Not Recovered/Not Resolved]
  - Heart rate decreased [Unknown]
  - Product packaging difficult to open [Unknown]
  - Myocardial infarction [Recovered/Resolved]
  - Gastrointestinal haemorrhage [Unknown]
  - Platelet count decreased [Recovered/Resolved]
  - Antibody test abnormal [Recovered/Resolved]

NARRATIVE: CASE EVENT DATE: 20210322
